FAERS Safety Report 13655451 (Version 1)
Quarter: 2017Q2

REPORT INFORMATION
  Report Type: Spontaneous
  Country: US (occurrence: US)
  Receive Date: 20170615
  Receipt Date: 20170615
  Transmission Date: 20170830
  Serious: Yes (Death, Hospitalization, Other)
  Sender: FDA-Public Use
  Company Number: US-B.I. PHARMACEUTICALS,INC./RIDGEFIELD-2017-BI-033318

PATIENT
  Age: 90 Year
  Sex: Female

DRUGS (1)
  1. AGGRENOX [Suspect]
     Active Substance: ASPIRIN\DIPYRIDAMOLE
     Indication: PRODUCT USED FOR UNKNOWN INDICATION
     Dosage: STRENGTH: ASPIRIN (25 MG)/ DIPYRIDAMOLE
     Route: 065

REACTIONS (3)
  - Death [Fatal]
  - Spinal epidural haematoma [Unknown]
  - Haemorrhage [Unknown]
